FAERS Safety Report 4933605-X (Version None)
Quarter: 2006Q1

REPORT INFORMATION
  Report Type: 
  Country: None (occurrence: None)
  Receive Date: 20060301
  Receipt Date: 20060216
  Transmission Date: 20060701
  Serious: Yes (Other)
  Sender: FDA-Public Use
  Company Number: 2006025908

PATIENT
  Sex: Male

DRUGS (1)
  1. VIAGRA [Suspect]
     Indication: ILL-DEFINED DISORDER

REACTIONS (5)
  - CARDIAC DISORDER [None]
  - DIABETES MELLITUS [None]
  - DRUG INEFFECTIVE [None]
  - HYPERTENSION [None]
  - TRIPLE VESSEL BYPASS GRAFT [None]
